FAERS Safety Report 13297700 (Version 1)
Quarter: 2017Q1

REPORT INFORMATION
  Report Type: Spontaneous
  Country: US (occurrence: US)
  Receive Date: 20170304
  Receipt Date: 20170304
  Transmission Date: 20170428
  Serious: Yes (Other)
  Sender: FDA-Public Use
  Company Number: None

PATIENT
  Age: 3 Year
  Sex: Female
  Weight: 38.25 kg

DRUGS (1)
  1. MIRALAX [Suspect]
     Active Substance: POLYETHYLENE GLYCOL 3350
     Indication: CONSTIPATION
     Dosage: ?          QUANTITY:17 GRAMS;?
     Route: 048
     Dates: start: 20090318, end: 20161019

REACTIONS (5)
  - Post-traumatic stress disorder [None]
  - Aggression [None]
  - Mental disorder [None]
  - Anger [None]
  - Affective disorder [None]

NARRATIVE: CASE EVENT DATE: 20090318
